FAERS Safety Report 5643563-0 (Version None)
Quarter: 2008Q1

REPORT INFORMATION
  Report Type: 
  Country: None (occurrence: None)
  Receive Date: 20080228
  Receipt Date: 20080214
  Transmission Date: 20080703
  Serious: Yes (Other)
  Sender: FDA-Public Use
  Company Number: US-PFIZER INC-2008017734

PATIENT
  Sex: Female
  Weight: 52.2 kg

DRUGS (7)
  1. CHANTIX [Suspect]
     Indication: SMOKING CESSATION THERAPY
     Dates: start: 20080114, end: 20080214
  2. AZITHROMYCIN [Interacting]
     Dosage: DAILY DOSE:500MG
  3. DIAZEPAM [Concomitant]
     Dosage: DAILY DOSE:10MG
  4. OXYCONTIN [Concomitant]
  5. NORCO [Concomitant]
  6. PREMARIN [Concomitant]
  7. MIRALAX [Concomitant]

REACTIONS (3)
  - DRUG INTERACTION [None]
  - HYPERSENSITIVITY [None]
  - SWELLING FACE [None]
